FAERS Safety Report 9953998 (Version 1)
Quarter: 2014Q1

REPORT INFORMATION
  Report Type: Spontaneous
  Country: US (occurrence: US)
  Receive Date: 20140304
  Receipt Date: 20140304
  Transmission Date: 20141002
  Serious: No
  Sender: FDA-Public Use
  Company Number: US-TARO-2013P1004926

PATIENT
  Age: 27 Year
  Sex: Female
  Weight: 68.49 kg

DRUGS (5)
  1. LAMOTRIGINE TABLETS 100 MG [Suspect]
     Indication: BIPOLAR DISORDER
     Route: 048
     Dates: start: 20130404
  2. KLONOPIN [Concomitant]
     Route: 048
     Dates: start: 201206, end: 201303
  3. KLONOPIN [Concomitant]
     Route: 048
     Dates: start: 201303
  4. UNSPECIFIED VITAMINS [Concomitant]
  5. GREEN TEA EXTRACT [Concomitant]

REACTIONS (1)
  - Dysgeusia [Not Recovered/Not Resolved]
